FAERS Safety Report 24642847 (Version 1)
Quarter: 2024Q4

REPORT INFORMATION
  Report Type: Spontaneous
  Country: CN (occurrence: CN)
  Receive Date: 20241120
  Receipt Date: 20241120
  Transmission Date: 20250114
  Serious: Yes (Other)
  Sender: PFIZER
  Company Number: CN-PFIZER INC-PV202400148428

PATIENT
  Age: 37 Year
  Sex: Female
  Weight: 62.4 kg

DRUGS (2)
  1. CYTARABINE [Suspect]
     Active Substance: CYTARABINE
     Indication: Acute myeloid leukaemia
     Dosage: 0.4 G, 2X/DAY
     Route: 041
     Dates: start: 20240720, end: 20240722
  2. CYTARABINE [Suspect]
     Active Substance: CYTARABINE
     Dosage: 3 G, 2X/DAY
     Route: 041
     Dates: start: 20240720, end: 20240722

REACTIONS (2)
  - Rash erythematous [Recovering/Resolving]
  - Pruritus [Recovering/Resolving]

NARRATIVE: CASE EVENT DATE: 20240722
